FAERS Safety Report 5672758-5 (Version None)
Quarter: 2008Q1

REPORT INFORMATION
  Report Type: 
  Country: None (occurrence: None)
  Receive Date: 20080319
  Receipt Date: 20071029
  Transmission Date: 20080703
  Serious: No
  Sender: FDA-Public Use
  Company Number: US-KINGPHARMUSA00001-K200701402

PATIENT

DRUGS (4)
  1. ALTACE [Suspect]
     Indication: HYPERTENSION
     Dosage: 15 MG, QD
     Route: 048
     Dates: start: 20050101
  2. ALTACE [Suspect]
     Dosage: UNK, QOD
     Route: 048
     Dates: start: 20050101
  3. TOPROL [Suspect]
     Indication: HYPERTENSION
     Dosage: UNK, QOD
     Route: 048
  4. PEPCID AC [Concomitant]
     Indication: GASTROOESOPHAGEAL REFLUX DISEASE
     Dosage: UNK, UNK
     Route: 048

REACTIONS (3)
  - DYSGEUSIA [None]
  - ERUCTATION [None]
  - HYPERTENSION [None]
